FAERS Safety Report 9643268 (Version 1)
Quarter: 2013Q4

REPORT INFORMATION
  Report Type: Spontaneous
  Country: US (occurrence: None)
  Receive Date: 20131022
  Receipt Date: 20131022
  Transmission Date: 20140711
  Serious: Yes (Hospitalization)
  Sender: FDA-Public Use
  Company Number: 2013P1019877

PATIENT
  Age: 37 Year
  Sex: Female

DRUGS (1)
  1. METHIMAZOLE [Suspect]
     Indication: HYPERTHYROIDISM

REACTIONS (7)
  - Abdominal pain [None]
  - Chest pain [None]
  - Anxiety [None]
  - Tremor [None]
  - Agranulocytosis [None]
  - Tooth abscess [None]
  - Sepsis [None]
